APPROVED DRUG PRODUCT: ISOSORBIDE MONONITRATE
Active Ingredient: ISOSORBIDE MONONITRATE
Strength: 120MG
Dosage Form/Route: TABLET, EXTENDED RELEASE;ORAL
Application: A210918 | Product #003 | TE Code: AB
Applicant: RICONPHARMA LLC
Approved: Nov 5, 2018 | RLD: No | RS: Yes | Type: RX